FAERS Safety Report 4684905-2 (Version None)
Quarter: 2005Q2

REPORT INFORMATION
  Report Type: 
  Country: None (occurrence: None)
  Receive Date: 20050606
  Receipt Date: 20050606
  Transmission Date: 20051028
  Serious: Yes (Other)
  Sender: FDA-Public Use
  Company Number: None

PATIENT
  Age: 78 Year
  Sex: Male
  Weight: 65.7716 kg

DRUGS (1)
  1. RISIDRONATE [Suspect]
     Indication: PROSTATE CANCER METASTATIC
     Dates: start: 20041101, end: 20050401

REACTIONS (2)
  - JAW DISORDER [None]
  - OSTEONECROSIS [None]
